FAERS Safety Report 4920719-3 (Version None)
Quarter: 2006Q1

REPORT INFORMATION
  Report Type: 
  Country: None (occurrence: None)
  Receive Date: 20060223
  Receipt Date: 20060213
  Transmission Date: 20060701
  Serious: Yes (Other)
  Sender: FDA-Public Use
  Company Number: US-ABBOTT-06P-163-0324742-00

PATIENT
  Sex: Female
  Weight: 67.192 kg

DRUGS (3)
  1. DILAUDID [Suspect]
     Indication: PAIN
     Route: 042
     Dates: start: 20060207, end: 20060207
  2. TOPROL [Concomitant]
     Indication: DRUG USE FOR UNKNOWN INDICATION
  3. LORATADINE [Concomitant]
     Indication: DRUG USE FOR UNKNOWN INDICATION

REACTIONS (10)
  - DYSKINESIA [None]
  - FEELING HOT [None]
  - HYPERHIDROSIS [None]
  - HYPERSENSITIVITY [None]
  - MUSCLE RIGIDITY [None]
  - MUSCLE SPASMS [None]
  - PARAESTHESIA ORAL [None]
  - SPEECH DISORDER [None]
  - THROAT TIGHTNESS [None]
  - TREMOR [None]
